FAERS Safety Report 18447238 (Version 2)
Quarter: 2020Q4

REPORT INFORMATION
  Report Type: Spontaneous
  Country: US (occurrence: US)
  Receive Date: 20201030
  Receipt Date: 20201113
  Transmission Date: 20210114
  Serious: Yes (Other)
  Sender: FDA-Public Use
  Company Number: US-NOVOPROD-710731

PATIENT
  Age: 47 Year
  Sex: Male

DRUGS (2)
  1. TRESIBA [Suspect]
     Active Substance: INSULIN DEGLUDEC
     Indication: TYPE 1 DIABETES MELLITUS
     Dosage: 20 IU, QD (20 UNITS ONCE A DAY)
     Route: 058
     Dates: start: 201906
  2. FIASP [Suspect]
     Active Substance: INSULIN ASPART
     Indication: TYPE 1 DIABETES MELLITUS
     Dosage: SLIDING SCALE DOSING
     Route: 058
     Dates: start: 201906

REACTIONS (5)
  - Hypoglycaemic seizure [Recovered/Resolved]
  - Tongue injury [Unknown]
  - Incorrect dose administered [Unknown]
  - Blood glucose increased [Unknown]
  - Lip injury [Unknown]

NARRATIVE: CASE EVENT DATE: 201911
